FAERS Safety Report 8457375-6 (Version None)
Quarter: 2012Q2

REPORT INFORMATION
  Report Type: 
  Country: None (occurrence: None)
  Receive Date: 20120621
  Receipt Date: 20120618
  Transmission Date: 20120825
  Serious: No
  Sender: FDA-Public Use
  Company Number: US-PFIZER INC-2012146707

PATIENT
  Sex: Male
  Weight: 77.098 kg

DRUGS (10)
  1. EFFEXOR XR [Suspect]
     Dosage: 150 MG, DAILY
     Dates: start: 20120601, end: 20120601
  2. LAMICTAL [Concomitant]
     Dosage: 100 MG, DAILY
     Dates: start: 20100501
  3. EFFEXOR XR [Suspect]
     Indication: MAJOR DEPRESSION
     Dosage: 225 MG, DAILY
     Dates: start: 19990601, end: 20070101
  4. LAMICTAL [Concomitant]
     Indication: BIPOLAR DISORDER
     Dosage: 100 MG, DAILY
     Dates: start: 20071201, end: 20080701
  5. LITHIUM [Concomitant]
     Dosage: 100 MG, DAILY
     Dates: start: 20100501
  6. LITHIUM [Concomitant]
     Indication: BIPOLAR DISORDER
     Dosage: 100 MG, DAILY
     Dates: start: 20070701, end: 20080701
  7. EFFEXOR XR [Suspect]
     Dosage: 225 MG, DAILY
     Dates: start: 20070701, end: 20080701
  8. EFFEXOR XR [Suspect]
     Dosage: 225 MG, DAILY
     Dates: start: 20100501
  9. EFFEXOR XR [Suspect]
     Dosage: 225 MG, AS NEEDED
     Dates: start: 20080701, end: 20100501
  10. EFFEXOR XR [Suspect]
     Dosage: 75 MG, DAILY
     Dates: start: 20120601

REACTIONS (8)
  - VOMITING [None]
  - PAIN [None]
  - IRRITABILITY [None]
  - DRUG ADMINISTRATION ERROR [None]
  - DIZZINESS [None]
  - ANGER [None]
  - NIGHTMARE [None]
  - NAUSEA [None]
